FAERS Safety Report 12356666 (Version 1)
Quarter: 2016Q2

REPORT INFORMATION
  Report Type: Spontaneous
  Country: IT (occurrence: IT)
  Receive Date: 20160511
  Receipt Date: 20160511
  Transmission Date: 20160815
  Serious: Yes (Hospitalization)
  Sender: FDA-Public Use
  Company Number: IT-PFIZER INC-2016248450

PATIENT
  Age: 90 Year
  Sex: Male

DRUGS (7)
  1. MIRTAZAPINE. [Concomitant]
     Active Substance: MIRTAZAPINE
     Dosage: 30 MG, UNK
     Route: 048
  2. LOPRESSOR [Concomitant]
     Active Substance: METOPROLOL TARTRATE
     Route: 048
  3. LYRICA [Suspect]
     Active Substance: PREGABALIN
     Indication: PAIN
     Dosage: 2 DF, 1X/DAY
     Route: 048
     Dates: start: 20160306, end: 20160311
  4. PANTOPRAZOLE [Concomitant]
     Active Substance: PANTOPRAZOLE SODIUM
     Dosage: 40 MG, UNK
     Route: 048
  5. TORVAST [Concomitant]
     Active Substance: ATORVASTATIN
     Route: 048
  6. LASIX [Concomitant]
     Active Substance: FUROSEMIDE
     Route: 048
  7. LEVOXACIN [Concomitant]
     Active Substance: LEVOFLOXACIN
     Route: 048

REACTIONS (2)
  - Drug clearance decreased [Unknown]
  - Sopor [Unknown]

NARRATIVE: CASE EVENT DATE: 20160311
